FAERS Safety Report 23466307 (Version 2)
Quarter: 2024Q4

REPORT INFORMATION
  Report Type: Report from Study
  Country: CO (occurrence: CO)
  Receive Date: 20240201
  Receipt Date: 20241218
  Transmission Date: 20250115
  Serious: Yes (Other)
  Sender: ARBOR
  Company Number: CO-TECNOFARMA-CO-0019-20240118

PATIENT
  Age: 8 Year
  Sex: Female

DRUGS (3)
  1. TRIPTODUR [Suspect]
     Active Substance: TRIPTORELIN
     Indication: Precocious puberty
     Dosage: 11.25 MG, EVERY 3 MONTHS (3M)
     Route: 030
     Dates: start: 20230721, end: 20230721
  2. TRIPTODUR [Suspect]
     Active Substance: TRIPTORELIN
  3. TRIPTODUR [Suspect]
     Active Substance: TRIPTORELIN

REACTIONS (3)
  - Pituitary tumour benign [Not Recovered/Not Resolved]
  - Weight decreased [Unknown]
  - Therapy cessation [Not Recovered/Not Resolved]

NARRATIVE: CASE EVENT DATE: 20240101
